FAERS Safety Report 23483902 (Version 2)
Quarter: 2024Q1

REPORT INFORMATION
  Report Type: Spontaneous
  Country: US (occurrence: US)
  Receive Date: 20240205
  Receipt Date: 20240326
  Transmission Date: 20240409
  Serious: Yes (Other)
  Sender: FDA-Public Use
  Company Number: US-BRISTOL-MYERS SQUIBB COMPANY-2024-017787

PATIENT
  Age: 34 Year
  Sex: Male

DRUGS (2)
  1. LENALIDOMIDE [Suspect]
     Active Substance: LENALIDOMIDE
     Indication: Plasma cell myeloma in remission
     Dosage: TAKE 1 CAPSULE BY MOUTH EVERY DAY FOR 14 DAYS THEN 7 DAYS OFF
     Route: 048
  2. LENALIDOMIDE [Suspect]
     Active Substance: LENALIDOMIDE
     Dosage: 10MG TAKING EVERY DAY FOR MAINTENANCE
     Route: 048

REACTIONS (2)
  - Adverse event [Recovered/Resolved]
  - Off label use [Unknown]
